FAERS Safety Report 9898944 (Version 1)
Quarter: 2014Q1

REPORT INFORMATION
  Report Type: Spontaneous
  Country: CA (occurrence: CA)
  Receive Date: 20140214
  Receipt Date: 20140214
  Transmission Date: 20141002
  Serious: Yes (Hospitalization)
  Sender: FDA-Public Use
  Company Number: CA-GLAXOSMITHKLINE-A1059889A

PATIENT
  Age: 29 Year
  Sex: Male

DRUGS (1)
  1. VOTRIENT [Suspect]
     Indication: SARCOMA METASTATIC
     Route: 065

REACTIONS (2)
  - Cardiac arrest [Recovering/Resolving]
  - Convulsion [Recovering/Resolving]
